FAERS Safety Report 21993380 (Version 1)
Quarter: 2023Q1

REPORT INFORMATION
  Report Type: Spontaneous
  Country: US (occurrence: US)
  Receive Date: 20230215
  Receipt Date: 20230215
  Transmission Date: 20230418
  Serious: No
  Sender: FDA-Public Use
  Company Number: US-AYTU BIOSCIENCES, INC.-2022AYT000119

PATIENT

DRUGS (1)
  1. ZOLPIMIST [Suspect]
     Active Substance: ZOLPIDEM TARTRATE
     Indication: Insomnia
     Dosage: UNK, QD

REACTIONS (2)
  - Product dose omission issue [Unknown]
  - Insomnia [None]

NARRATIVE: CASE EVENT DATE: 20220101
